FAERS Safety Report 5932077-6 (Version None)
Quarter: 2008Q4

REPORT INFORMATION
  Report Type: 
  Country: None (occurrence: None)
  Receive Date: 20081027
  Receipt Date: 20081013
  Transmission Date: 20090506
  Serious: Yes (Other)
  Sender: FDA-Public Use
  Company Number: US-GENENTECH-270335

PATIENT

DRUGS (1)
  1. RITUXAN [Suspect]
     Indication: POLYMYOSITIS

REACTIONS (1)
  - SYNCOPE [None]
